FAERS Safety Report 4352795-3 (Version None)
Quarter: 2004Q2

REPORT INFORMATION
  Report Type: 
  Country: None (occurrence: None)
  Receive Date: 20040429
  Receipt Date: 20040414
  Transmission Date: 20050107
  Serious: Yes (Hospitalization)
  Sender: FDA-Public Use
  Company Number: None

PATIENT
  Sex: Female

DRUGS (5)
  1. AVONEX [Suspect]
     Indication: MULTIPLE SCLEROSIS
     Dosage: 30 MCG QW IM
     Route: 030
  2. CYCLOBENZAPRINE [Concomitant]
  3. AMITRIPTYLINE HCL [Concomitant]
  4. NORTRIPTYLINE HCL [Concomitant]
  5. VICODIN [Concomitant]

REACTIONS (5)
  - INFLUENZA [None]
  - PAIN IN EXTREMITY [None]
  - PARAESTHESIA [None]
  - SINUS DISORDER [None]
  - TREMOR [None]
